FAERS Safety Report 4737768-0 (Version None)
Quarter: 2005Q3

REPORT INFORMATION
  Report Type: 
  Country: None (occurrence: None)
  Receive Date: 20050803
  Receipt Date: 20050721
  Transmission Date: 20060218
  Serious: Yes (Other)
  Sender: FDA-Public Use
  Company Number: 207936

PATIENT
  Age: 65 Year
  Sex: Female
  Weight: 61.2356 kg

DRUGS (12)
  1. AVONEX [Suspect]
     Indication: MULTIPLE SCLEROSIS
     Dosage: 30 UG;QW; IM
     Route: 030
     Dates: start: 20020101, end: 20030101
  2. AVONEX [Suspect]
     Indication: MULTIPLE SCLEROSIS
     Dosage: 30 UG;QW; IM
     Route: 030
     Dates: start: 20030101
  3. CELEBREX [Concomitant]
  4. CLARINEX [Concomitant]
  5. CLONAZEPAM [Concomitant]
  6. DITROPAN XL [Concomitant]
  7. HECTOROL [Concomitant]
  8. MOTRIN [Concomitant]
  9. NEURONTIN [Concomitant]
  10. VITAMIN A [Concomitant]
  11. TEGRETOL-XR [Concomitant]
  12. ROCALTROL [Concomitant]

REACTIONS (9)
  - ASTHENIA [None]
  - DIPLOPIA [None]
  - DYSARTHRIA [None]
  - EPIGASTRIC DISCOMFORT [None]
  - FEELING ABNORMAL [None]
  - INITIAL INSOMNIA [None]
  - NAUSEA [None]
  - SPEECH DISORDER [None]
  - VISUAL DISTURBANCE [None]
